FAERS Safety Report 17004197 (Version 2)
Quarter: 2019Q4

REPORT INFORMATION
  Report Type: Spontaneous
  Country: US (occurrence: US)
  Receive Date: 20191107
  Receipt Date: 20191204
  Transmission Date: 20200122
  Serious: No
  Sender: FDA-Public Use
  Company Number: US-009507513-1910USA017000

PATIENT
  Age: 18 Year
  Sex: Female
  Weight: 61.69 kg

DRUGS (2)
  1. NEXPLANON [Suspect]
     Active Substance: ETONOGESTREL
     Dosage: 1 UNK
     Route: 059
     Dates: start: 20191024
  2. NEXPLANON [Suspect]
     Active Substance: ETONOGESTREL
     Dosage: 1 IMPLANT
     Route: 059
     Dates: start: 20191024, end: 20191024

REACTIONS (5)
  - Device difficult to use [Recovered/Resolved]
  - Device deployment issue [Recovered/Resolved]
  - Device expulsion [Recovered/Resolved]
  - Complication of device insertion [Recovered/Resolved]
  - No adverse event [Unknown]

NARRATIVE: CASE EVENT DATE: 20191024
